FAERS Safety Report 25562404 (Version 1)
Quarter: 2025Q3

REPORT INFORMATION
  Report Type: Spontaneous
  Country: US (occurrence: US)
  Receive Date: 20250716
  Receipt Date: 20250716
  Transmission Date: 20251021
  Serious: No
  Sender: NOVO NORDISK
  Company Number: US-NOVOPROD-1382239

PATIENT
  Sex: Female

DRUGS (1)
  1. OZEMPIC [Suspect]
     Active Substance: SEMAGLUTIDE
     Indication: Type 2 diabetes mellitus
     Dosage: 2MG DOSE WEEKLY
     Route: 058
     Dates: start: 2022

REACTIONS (3)
  - Ear discomfort [Unknown]
  - Hypoacusis [Unknown]
  - Headache [Unknown]
